FAERS Safety Report 20986270 (Version 1)
Quarter: 2022Q2

REPORT INFORMATION
  Report Type: Spontaneous
  Country: US (occurrence: None)
  Receive Date: 20220617
  Receipt Date: 20220617
  Transmission Date: 20220721
  Serious: No
  Sender: FDA-Public Use
  Company Number: None

PATIENT
  Age: 62 Year
  Sex: Female
  Weight: 81 kg

DRUGS (10)
  1. LEVOFLOXACIN [Suspect]
     Active Substance: LEVOFLOXACIN
     Indication: Salivary gland enlargement
     Dosage: FREQUENCY : DAILY;?
     Route: 048
     Dates: start: 20220606, end: 20220615
  2. ALLOPURINOL [Concomitant]
     Active Substance: ALLOPURINOL
  3. HYDROCHLOROTHIAZIDE [Concomitant]
     Active Substance: HYDROCHLOROTHIAZIDE
  4. SYNTHROID [Concomitant]
     Active Substance: LEVOTHYROXINE SODIUM
  5. VITAMIN D [Concomitant]
     Active Substance: VITAMIN D NOS
  6. CURCUMIN [Concomitant]
     Active Substance: CURCUMIN
  7. GINKGO [Concomitant]
     Active Substance: GINKGO
  8. CALCIUM [Concomitant]
     Active Substance: CALCIUM
  9. VITAMINS [Concomitant]
     Active Substance: VITAMINS
  10. OMEGA-3 ACIDS [Concomitant]
     Active Substance: OMEGA-3 FATTY ACIDS

REACTIONS (6)
  - Musculoskeletal stiffness [None]
  - Pain in extremity [None]
  - Muscular weakness [None]
  - Arthropathy [None]
  - Insomnia [None]
  - Arthralgia [None]

NARRATIVE: CASE EVENT DATE: 20220614
